FAERS Safety Report 17261578 (Version 1)
Quarter: 2020Q1

REPORT INFORMATION
  Report Type: Spontaneous
  Country: NL (occurrence: NL)
  Receive Date: 20200113
  Receipt Date: 20200113
  Transmission Date: 20200409
  Serious: Yes (Hospitalization)
  Sender: FDA-Public Use
  Company Number: NL-TEVA-2020-NL-1167124

PATIENT
  Age: 63 Year
  Sex: Female
  Weight: 95.5 kg

DRUGS (6)
  1. METOPROLOL. [Concomitant]
     Active Substance: METOPROLOL
  2. CAPECITABINE. [Suspect]
     Active Substance: CAPECITABINE
     Indication: COLON CANCER
     Dosage: FILM-COATED TABLET, 500 MG (MILLIGRAM), 2 TIMES A DAY, 2 , 500 MG 12 HOURS
     Dates: start: 20191121, end: 20191202
  3. SERETIDE (SALMETEROL/FLUTICASON) [Concomitant]
  4. OXALIPLATINE [Concomitant]
     Active Substance: OXALIPLATIN
  5. EUTHYROX (LEVOTHYROXINE) [Concomitant]
  6. ADALAT (NIFEDIPINE) [Concomitant]

REACTIONS (1)
  - Mucosal inflammation [Recovering/Resolving]

NARRATIVE: CASE EVENT DATE: 20191202
